FAERS Safety Report 8738271 (Version 2)
Quarter: 2013Q4

REPORT INFORMATION
  Report Type: Report from Study
  Country: US (occurrence: US)
  Receive Date: 20120823
  Receipt Date: 20131031
  Transmission Date: 20140711
  Serious: Yes (Life-Threatening, Hospitalization, Disabling)
  Sender: FDA-Public Use
  Company Number: US-MERCK-1208USA005879

PATIENT
  Age: 15 Year
  Sex: Female

DRUGS (2)
  1. ZOLINZA [Suspect]
     Indication: ACUTE LEUKAEMIA
     Dosage: 180 MG, DAILY FOR 1 WEEK ON AND 1 WEEK OFF
     Route: 048
  2. DECITABINE [Suspect]
     Indication: ACUTE LEUKAEMIA
     Dosage: 15 MG PER KG

REACTIONS (3)
  - Convulsion [Not Recovered/Not Resolved]
  - Blood test abnormal [Not Recovered/Not Resolved]
  - Ammonia increased [Not Recovered/Not Resolved]
